FAERS Safety Report 13665873 (Version 1)
Quarter: 2017Q2

REPORT INFORMATION
  Report Type: Spontaneous
  Country: AT (occurrence: AT)
  Receive Date: 20170619
  Receipt Date: 20170619
  Transmission Date: 20170830
  Serious: Yes (Life-Threatening, Hospitalization, Other)
  Sender: FDA-Public Use
  Company Number: AT-ELI_LILLY_AND_COMPANY-AT201706005603

PATIENT
  Age: 53 Year
  Sex: Female

DRUGS (25)
  1. ESOMEP                             /01479301/ [Suspect]
     Active Substance: ESOMEPRAZOLE
     Indication: PRODUCT USED FOR UNKNOWN INDICATION
     Dosage: 20 MG, UNKNOWN
     Route: 048
  2. KEMADRIN [Concomitant]
     Active Substance: PROCYCLIDINE HYDROCHLORIDE
     Indication: PRODUCT USED FOR UNKNOWN INDICATION
     Dosage: 2 DF, UNKNOWN
     Route: 065
     Dates: start: 20160517, end: 20160522
  3. NACL [Concomitant]
     Active Substance: SODIUM CHLORIDE
     Dosage: 3000 MG, UNKNOWN
     Route: 048
     Dates: start: 20160520, end: 20160520
  4. SPASMO-LYT [Concomitant]
     Indication: PRODUCT USED FOR UNKNOWN INDICATION
     Dosage: 2 DF, UNKNOWN
     Route: 065
     Dates: start: 20160517, end: 20160518
  5. RISPERDAL [Suspect]
     Active Substance: RISPERIDONE
     Indication: PRODUCT USED FOR UNKNOWN INDICATION
     Dosage: 2 MG, UNKNOWN
     Route: 048
     Dates: start: 20160517, end: 20160523
  6. LEPONEX [Suspect]
     Active Substance: CLOZAPINE
     Indication: PRODUCT USED FOR UNKNOWN INDICATION
     Dosage: 200 MG, UNKNOWN
     Route: 048
     Dates: start: 20160517, end: 20160525
  7. TEMESTA                            /00273201/ [Concomitant]
     Active Substance: LORAZEPAM
     Dosage: 2 MG, UNKNOWN
     Route: 048
     Dates: start: 20160519, end: 20160523
  8. NACL [Concomitant]
     Active Substance: SODIUM CHLORIDE
     Dosage: 2000 MG, UNKNOWN
     Route: 048
     Dates: start: 20160519, end: 20160519
  9. THYREX [Concomitant]
     Active Substance: LEVOTHYROXINE SODIUM
     Indication: PRODUCT USED FOR UNKNOWN INDICATION
     Dosage: 0.1 MG, UNKNOWN
     Route: 048
     Dates: start: 20160517, end: 20160525
  10. TEMESTA                            /00273201/ [Concomitant]
     Active Substance: LORAZEPAM
     Indication: PRODUCT USED FOR UNKNOWN INDICATION
     Dosage: 1 MG, UNKNOWN
     Route: 048
     Dates: start: 20160517, end: 20160518
  11. NACL [Concomitant]
     Active Substance: SODIUM CHLORIDE
     Indication: HYPONATRAEMIA
     Dosage: 4000 MG, UNKNOWN
     Route: 048
     Dates: start: 20160518, end: 20160518
  12. NACL [Concomitant]
     Active Substance: SODIUM CHLORIDE
     Dosage: 5000 MG, UNKNOWN
     Route: 048
     Dates: start: 20160521, end: 20160521
  13. URIVESC [Concomitant]
     Active Substance: TROSPIUM CHLORIDE
     Indication: PRODUCT USED FOR UNKNOWN INDICATION
     Dosage: 60 MG, UNKNOWN
     Route: 048
     Dates: start: 20160517, end: 20160522
  14. MAGNOSOLV [Concomitant]
     Indication: PRODUCT USED FOR UNKNOWN INDICATION
     Dosage: UNK, UNKNOWN
     Route: 065
     Dates: start: 20160517, end: 20160525
  15. NACL [Concomitant]
     Active Substance: SODIUM CHLORIDE
     Dosage: 6000 MG, UNKNOWN
     Route: 048
     Dates: start: 20160523, end: 20160523
  16. NACL [Concomitant]
     Active Substance: SODIUM CHLORIDE
     Dosage: 5000 MG, UNKNOWN
     Route: 048
     Dates: start: 20160524, end: 20160524
  17. DUROTIV [Concomitant]
     Active Substance: ESOMEPRAZOLE
     Indication: PRODUCT USED FOR UNKNOWN INDICATION
     Dosage: 20 MG, UNKNOWN
     Route: 065
     Dates: start: 20160517, end: 20160525
  18. DEPAKINE                           /00228501/ [Suspect]
     Active Substance: VALPROIC ACID
     Indication: PRODUCT USED FOR UNKNOWN INDICATION
     Dosage: 1000 MG, UNKNOWN
     Route: 048
     Dates: start: 20160517, end: 20160525
  19. RISPERDAL CONSTA [Concomitant]
     Active Substance: RISPERIDONE
     Indication: PRODUCT USED FOR UNKNOWN INDICATION
     Dosage: 2 MG, EVERY 14 DAYS
     Route: 030
     Dates: start: 20160509, end: 20160524
  20. NACL [Concomitant]
     Active Substance: SODIUM CHLORIDE
     Indication: PRODUCT USED FOR UNKNOWN INDICATION
     Dosage: 2000 MG, UNKNOWN
     Route: 048
     Dates: start: 20160517, end: 20160517
  21. TEMESTA                            /00273201/ [Concomitant]
     Active Substance: LORAZEPAM
     Dosage: 1.5 MG, UNKNOWN
     Route: 048
     Dates: start: 20160524, end: 20160525
  22. AKINETON [Concomitant]
     Active Substance: BIPERIDEN HYDROCHLORIDE
     Indication: EXTRAPYRAMIDAL DISORDER
  23. ZYPREXA [Suspect]
     Active Substance: OLANZAPINE
     Indication: SCHIZOPHRENIA
     Dosage: UNK, UNKNOWN
     Route: 065
     Dates: end: 20160517
  24. NACL [Concomitant]
     Active Substance: SODIUM CHLORIDE
     Dosage: 6000 MG, UNKNOWN
     Route: 048
     Dates: start: 20160525, end: 20160525
  25. AKINETON [Concomitant]
     Active Substance: BIPERIDEN HYDROCHLORIDE
     Indication: PRODUCT USED FOR UNKNOWN INDICATION
     Dosage: 4 MG, UNKNOWN
     Route: 065
     Dates: start: 20160523, end: 20160525

REACTIONS (6)
  - Blood glucose decreased [Unknown]
  - Polydipsia psychogenic [Unknown]
  - Glutamate dehydrogenase increased [Unknown]
  - Hyponatraemia [Recovering/Resolving]
  - Hallucination, auditory [Unknown]
  - Extrapyramidal disorder [Recovering/Resolving]

NARRATIVE: CASE EVENT DATE: 20160517
